FAERS Safety Report 5197649-8 (Version None)
Quarter: 2006Q4

REPORT INFORMATION
  Report Type: 
  Country: None (occurrence: None)
  Receive Date: 20061228
  Receipt Date: 20061218
  Transmission Date: 20070319
  Serious: Yes (Hospitalization, Other)
  Sender: FDA-Public Use
  Company Number: 028-21880-06110770

PATIENT
  Age: 61 Year
  Sex: Male
  Weight: 62.7 kg

DRUGS (29)
  1. REVLIMID [Suspect]
     Indication: CHRONIC LYMPHOCYTIC LEUKAEMIA
     Dosage: 25 MG, 1 IN 1 D; ORAL
     Route: 048
     Dates: start: 20061004, end: 20061112
  2. PROCHLORPERAZINE [Concomitant]
  3. TYLENOL [Concomitant]
  4. ALLOPURINOL SODIUM [Concomitant]
  5. PREDNISONE TAB [Concomitant]
  6. DOCUSATE SODIUM (DOCUSATE SODIUM) (CAPSULE) [Concomitant]
  7. LORAZEPAM [Concomitant]
  8. PROCHLORPERAZINE [Concomitant]
  9. CLOPIDOGREL [Concomitant]
  10. OLANZAPINE [Concomitant]
  11. NA POLYSTYR SULF RESIN (SODOIM POLYSTYRENE SULFONATE) [Concomitant]
  12. FUROSEMIDE [Concomitant]
  13. SODIUM BICARBONATE (SODIUM BICARBONATE) (TABLETS) [Concomitant]
  14. DOMPERIDONE (DOMPERIDONE) (TABLETS) [Concomitant]
  15. ONDANSETRON [Concomitant]
  16. MORPHINE SULFATE [Concomitant]
  17. SENNA GLYCSIDES (SENNA ALEXANDRINA EXTRACT) (TABLETS) [Concomitant]
  18. POTASSIUM CHLORIDE [Concomitant]
  19. MAGNESIUM-CASCARA (MAGNESIUM) (LIQUID) [Concomitant]
  20. OXYCODONE-ACETAMIN (OXYCODONE) (TABLETS) [Concomitant]
  21. NACIL 0.9% (SODIUM CHLORIDE) [Concomitant]
  22. MAGNESIUM CITRATE (MAGNESIUM CITRATE) (LIQUID) [Concomitant]
  23. AMIODARONE HCL [Concomitant]
  24. HEXYLPRESORCINOL [Concomitant]
  25. ZOPICLONE (ZOPICLONE) (TABLETS) [Concomitant]
  26. HEPARIN [Concomitant]
  27. ATROPINE [Concomitant]
  28. PLAVIX [Concomitant]
  29. POTASSIUM ACETATE [Concomitant]

REACTIONS (23)
  - ANAEMIA [None]
  - ATRIAL FIBRILLATION [None]
  - ATRIOVENTRICULAR BLOCK FIRST DEGREE [None]
  - BLOOD CALCIUM DECREASED [None]
  - BLOOD GLUCOSE INCREASED [None]
  - BLOOD PRESSURE DECREASED [None]
  - BLOOD SODIUM DECREASED [None]
  - CARDIAC FAILURE CONGESTIVE [None]
  - CARDIOMEGALY [None]
  - DIASTOLIC DYSFUNCTION [None]
  - HYPOCALCAEMIA [None]
  - INFLAMMATION [None]
  - INTERNATIONAL NORMALISED RATIO INCREASED [None]
  - LYMPHADENOPATHY [None]
  - MYOCARDIAL INFARCTION [None]
  - PLEURAL EFFUSION [None]
  - PULMONARY VASCULAR DISORDER [None]
  - RENAL FAILURE ACUTE [None]
  - RIGHT VENTRICULAR FAILURE [None]
  - TUMOUR LYSIS SYNDROME [None]
  - VASODILATATION [None]
  - VENTRICULAR EXTRASYSTOLES [None]
  - WHITE BLOOD CELL COUNT INCREASED [None]
